FAERS Safety Report 5080361-3 (Version None)
Quarter: 2006Q3

REPORT INFORMATION
  Report Type: 
  Country: None (occurrence: None)
  Receive Date: 20060814
  Receipt Date: 20060814
  Transmission Date: 20061208
  Serious: Yes (Death)
  Sender: FDA-Public Use
  Company Number: None

PATIENT
  Age: 78 Year
  Sex: Male
  Weight: 79.3795 kg

DRUGS (1)
  1. ATROPINE [Suspect]
     Indication: RESPIRATORY DISORDER
     Dosage: 2 DROPS ONCE PO   ONE DOSE
     Route: 048
     Dates: start: 20060803, end: 20060803

REACTIONS (1)
  - RESPIRATORY ARREST [None]
